FAERS Safety Report 22367337 (Version 7)
Quarter: 2023Q4

REPORT INFORMATION
  Report Type: Spontaneous
  Country: US (occurrence: US)
  Receive Date: 20230525
  Receipt Date: 20231128
  Transmission Date: 20240109
  Serious: No
  Sender: FDA-Public Use
  Company Number: US-PFIZER INC-PV202300090654

PATIENT
  Age: 75 Year
  Sex: Female
  Weight: 87.09 kg

DRUGS (5)
  1. IBRANCE [Suspect]
     Active Substance: PALBOCICLIB
     Indication: Breast cancer female
     Dosage: 125 MG
  2. IBRANCE [Suspect]
     Active Substance: PALBOCICLIB
     Dosage: 100 MG
     Dates: end: 20230905
  3. IBRANCE [Suspect]
     Active Substance: PALBOCICLIB
     Dosage: 75 MG
  4. IBRANCE [Suspect]
     Active Substance: PALBOCICLIB
     Dosage: ONCE A DAY (THREE WEEKS ON AND THEN OFF A WEEK)
     Route: 048
  5. ELIQUIS [Concomitant]
     Active Substance: APIXABAN

REACTIONS (7)
  - Nasopharyngitis [Unknown]
  - Stomatitis [Unknown]
  - Body height decreased [Unknown]
  - Gingival pain [Recovered/Resolved]
  - Glossodynia [Recovered/Resolved]
  - White blood cell count decreased [Unknown]
  - Neoplasm progression [Unknown]

NARRATIVE: CASE EVENT DATE: 20230101
